FAERS Safety Report 9912438 (Version 2)
Quarter: 2014Q1

REPORT INFORMATION
  Report Type: Spontaneous
  Country: FI (occurrence: FI)
  Receive Date: 20140220
  Receipt Date: 20140304
  Transmission Date: 20141002
  Serious: Yes (Death)
  Sender: FDA-Public Use
  Company Number: FI-BRISTOL-MYERS SQUIBB COMPANY-20191425

PATIENT
  Age: 83 Year
  Sex: Male

DRUGS (1)
  1. ELIQUIS [Suspect]
     Dosage: 30-31JAN14,30JAN14:1 DF= 2 TABLET IN THE EVENING,31JAN14: IN THE MORNING
     Dates: start: 20140130

REACTIONS (1)
  - Arrhythmia [Fatal]
